FAERS Safety Report 19375836 (Version 2)
Quarter: 2023Q1

REPORT INFORMATION
  Report Type: Report from Study
  Country: US (occurrence: US)
  Receive Date: 20210604
  Receipt Date: 20230222
  Transmission Date: 20230418
  Serious: No
  Sender: FDA-Public Use
  Company Number: US-KYOWAKIRIN-2021BKK008713

PATIENT

DRUGS (2)
  1. CRYSVITA [Suspect]
     Active Substance: BUROSUMAB-TWZA
     Indication: Hereditary hypophosphataemic rickets
     Dosage: 20 MG/ML, EVERY 14 DAYS
     Route: 065
     Dates: start: 20201230
  2. CRYSVITA [Suspect]
     Active Substance: BUROSUMAB-TWZA
     Indication: Hereditary hypophosphataemic rickets
     Dosage: 30 MG, 1X/2 WEEKS
     Route: 058
     Dates: start: 202102

REACTIONS (6)
  - Eye swelling [Unknown]
  - Pain in extremity [Unknown]
  - Injection site pruritus [Unknown]
  - Skin mass [Unknown]
  - Bone pain [Unknown]
  - Sleep apnoea syndrome [Unknown]
